FAERS Safety Report 6572863-5 (Version None)
Quarter: 2010Q1

REPORT INFORMATION
  Report Type: 
  Country: None (occurrence: None)
  Receive Date: 20100207
  Receipt Date: 20100128
  Transmission Date: 20100710
  Serious: Yes (Hospitalization)
  Sender: FDA-Public Use
  Company Number: GB-ELI_LILLY_AND_COMPANY-GB201001006091

PATIENT
  Age: 60 Year
  Sex: Male
  Weight: 90 kg

DRUGS (3)
  1. HUMALOG MIX 75/25 [Suspect]
     Dosage: UNK, UNKNOWN
     Route: 065
     Dates: start: 20091205
  2. CIPROFLAXACIN [Concomitant]
     Dosage: UNK, UNKNOWN
     Route: 065
  3. CLINDAMYCIN [Concomitant]
     Dosage: UNK, UNKNOWN
     Route: 065

REACTIONS (6)
  - ERYTHEMA MULTIFORME [None]
  - HYPERSENSITIVITY [None]
  - MOUTH ULCERATION [None]
  - PALMAR-PLANTAR ERYTHRODYSAESTHESIA SYNDROME [None]
  - RASH GENERALISED [None]
  - STEVENS-JOHNSON SYNDROME [None]
